FAERS Safety Report 13474200 (Version 1)
Quarter: 2017Q2

REPORT INFORMATION
  Report Type: Report from Study
  Country: FR (occurrence: FR)
  Receive Date: 20170424
  Receipt Date: 20170424
  Transmission Date: 20170830
  Serious: Yes (Death, Hospitalization, Other)
  Sender: FDA-Public Use
  Company Number: FR-SEATTLE GENETICS-2016SGN02109

PATIENT

DRUGS (9)
  1. XELOX [Concomitant]
     Active Substance: CAPECITABINE\OXALIPLATIN
     Indication: ENTEROPATHY-ASSOCIATED T-CELL LYMPHOMA
     Dosage: UNK
     Route: 065
     Dates: start: 20160224
  2. PREDNISONE. [Concomitant]
     Active Substance: PREDNISONE
     Indication: ENTEROPATHY-ASSOCIATED T-CELL LYMPHOMA
     Dosage: UNK
     Route: 065
     Dates: start: 20150925, end: 20151130
  3. BRENTUXIMAB VEDOTIN [Suspect]
     Active Substance: BRENTUXIMAB VEDOTIN
     Indication: ENTEROPATHY-ASSOCIATED T-CELL LYMPHOMA
     Dosage: 99 MG, UNK
     Route: 065
     Dates: start: 20150925, end: 20151130
  4. VP-16 [Concomitant]
     Active Substance: ETOPOSIDE
     Indication: ENTEROPATHY-ASSOCIATED T-CELL LYMPHOMA
     Dosage: UNK
     Route: 065
     Dates: start: 20151224
  5. BENDAMUSTINE [Concomitant]
     Active Substance: BENDAMUSTINE
     Indication: LYMPHOMA
     Dosage: UNK
     Route: 042
     Dates: start: 20160309, end: 20160309
  6. BRENTUXIMAB VEDOTIN [Suspect]
     Active Substance: BRENTUXIMAB VEDOTIN
     Dosage: 94 MG, UNK
     Route: 042
     Dates: start: 20160309, end: 20160309
  7. METHOTREXATE. [Concomitant]
     Active Substance: METHOTREXATE
     Indication: ENTEROPATHY-ASSOCIATED T-CELL LYMPHOMA
     Dosage: UNK
     Route: 065
     Dates: start: 20151224
  8. CYCLOPHOSPHAMIDE. [Concomitant]
     Active Substance: CYCLOPHOSPHAMIDE
     Indication: ENTEROPATHY-ASSOCIATED T-CELL LYMPHOMA
     Dosage: UNK
     Route: 065
     Dates: start: 20150925, end: 20151130
  9. DOXORUBICIN [Concomitant]
     Active Substance: DOXORUBICIN
     Indication: ENTEROPATHY-ASSOCIATED T-CELL LYMPHOMA
     Dosage: UNK
     Route: 065
     Dates: start: 20150925, end: 20151130

REACTIONS (7)
  - Septic shock [Fatal]
  - Gastric ulcer [Unknown]
  - Haematemesis [Unknown]
  - Bone marrow failure [Fatal]
  - Off label use [Unknown]
  - Multiple organ dysfunction syndrome [Fatal]
  - Enteropathy-associated T-cell lymphoma [Unknown]

NARRATIVE: CASE EVENT DATE: 20150925
